FAERS Safety Report 6530153-0 (Version None)
Quarter: 2009Q4

REPORT INFORMATION
  Report Type: 
  Country: None (occurrence: None)
  Receive Date: 20091231
  Receipt Date: 20091229
  Transmission Date: 20100525
  Serious: Yes (Life-Threatening, Hospitalization)
  Sender: FDA-Public Use
  Company Number: 2009SP041407

PATIENT
  Age: 62 Year
  Sex: Male

DRUGS (5)
  1. DESLORATADINE [Suspect]
     Indication: SLEEP APNOEA SYNDROME
     Dosage: 5 MG;QD;PO
     Route: 048
     Dates: start: 20080101, end: 20091029
  2. NASONEX [Suspect]
     Indication: SLEEP APNOEA SYNDROME
     Dosage: 2 DF;QD;NAS
     Route: 045
     Dates: start: 20080101, end: 20091029
  3. ACTIFED [Suspect]
     Indication: NASOPHARYNGITIS
     Dosage: 1 DF;QPM;PO; 3 DF;QD;PO
     Route: 048
     Dates: start: 20091027, end: 20091029
  4. ACTIFED [Suspect]
     Indication: NASOPHARYNGITIS
     Dosage: 1 DF;QPM;PO; 3 DF;QD;PO
     Route: 048
     Dates: start: 20091027, end: 20091029
  5. FERVEX (ASCORBIC ACID/PARACETAMOL/PHENIRAMINE) [Suspect]
     Indication: NASOPHARYNGITIS
     Dosage: 4 DF;QD;PO
     Route: 048
     Dates: start: 20091027, end: 20091029

REACTIONS (4)
  - AGITATION [None]
  - DYSPNOEA AT REST [None]
  - NASOPHARYNGITIS [None]
  - TRANSIENT ISCHAEMIC ATTACK [None]
